FAERS Safety Report 9230380 (Version 1)
Quarter: 2013Q2

REPORT INFORMATION
  Report Type: Spontaneous
  Country: US (occurrence: US)
  Receive Date: 20130415
  Receipt Date: 20130415
  Transmission Date: 20140414
  Serious: Yes (Other)
  Sender: FDA-Public Use
  Company Number: PHEH2013US008356

PATIENT
  Sex: Female

DRUGS (4)
  1. DIOVAN [Suspect]
     Dosage: UNK UKN, UNK
  2. PRO-AIR [Suspect]
     Dosage: UNK UKN, UNK
  3. PRO-AIR [Suspect]
     Dosage: 2 DF, TWO INHALERS DAILY
  4. SYMBICORT [Suspect]
     Dosage: UNK UKN, UNK

REACTIONS (1)
  - Asthma [Not Recovered/Not Resolved]
